FAERS Safety Report 6207969-3 (Version None)
Quarter: 2009Q2

REPORT INFORMATION
  Report Type: 
  Country: None (occurrence: None)
  Receive Date: 20090529
  Receipt Date: 20090113
  Transmission Date: 20091009
  Serious: No
  Sender: FDA-Public Use
  Company Number: A0763433A

PATIENT
  Age: 70 Year
  Sex: Female

DRUGS (4)
  1. VENTOLIN [Suspect]
     Indication: CHRONIC OBSTRUCTIVE PULMONARY DISEASE
     Dosage: 2PUFF AS REQUIRED
     Route: 055
     Dates: start: 20081201
  2. SPIRIVA [Concomitant]
  3. CARDIZEM [Concomitant]
  4. TAMBOCOR [Concomitant]

REACTIONS (1)
  - DRUG INEFFECTIVE [None]
